FAERS Safety Report 19791240 (Version 1)
Quarter: 2021Q3

REPORT INFORMATION
  Report Type: Report from Study
  Country: US (occurrence: US)
  Receive Date: 20210906
  Receipt Date: 20210906
  Transmission Date: 20211014
  Serious: Yes (Hospitalization, Other)
  Sender: FDA-Public Use
  Company Number: US-SA-2019SA235296

PATIENT
  Age: 71 Year
  Sex: Female

DRUGS (4)
  1. DUPILUMAB [Suspect]
     Active Substance: DUPILUMAB
     Dosage: 300 MG, QOW
     Route: 058
     Dates: start: 202108
  2. DUPILUMAB [Suspect]
     Active Substance: DUPILUMAB
     Dosage: 300 MG, QOW
     Route: 058
     Dates: start: 2019, end: 20200901
  3. DUPILUMAB [Suspect]
     Active Substance: DUPILUMAB
     Indication: DERMATITIS ATOPIC
     Dosage: 600 MG, 1X
     Route: 058
     Dates: start: 20190111, end: 20190111
  4. DUPILUMAB [Suspect]
     Active Substance: DUPILUMAB
     Dosage: 600 MG, 1X
     Route: 058
     Dates: start: 20210813, end: 20210813

REACTIONS (10)
  - Brain neoplasm [Unknown]
  - Cholelithiasis [Unknown]
  - Blood pressure increased [Unknown]
  - Flatulence [Unknown]
  - COVID-19 [Unknown]
  - Pain [Unknown]
  - Abdominal pain upper [Unknown]
  - Dermatitis atopic [Recovering/Resolving]
  - Cerebrovascular accident [Unknown]
  - Confusional state [Unknown]

NARRATIVE: CASE EVENT DATE: 201907
